FAERS Safety Report 7656566-1 (Version None)
Quarter: 2011Q3

REPORT INFORMATION
  Report Type: 
  Country: None (occurrence: None)
  Receive Date: 20110804
  Receipt Date: 20110307
  Transmission Date: 20111222
  Serious: No
  Sender: FDA-Public Use
  Company Number: US-BAUSCH-2011BL001460

PATIENT
  Age: 75 Year
  Sex: Female

DRUGS (3)
  1. OPCON-A [Suspect]
     Indication: DRY EYE
     Route: 047
     Dates: start: 20110305, end: 20110305
  2. OPCON-A [Suspect]
     Indication: OFF LABEL USE
     Route: 047
     Dates: start: 20110305, end: 20110305
  3. MAXZIDE [Concomitant]
     Indication: PRODUCT USED FOR UNKNOWN INDICATION

REACTIONS (2)
  - FLUSHING [None]
  - BLOOD PRESSURE INCREASED [None]
